FAERS Safety Report 6983922-7 (Version None)
Quarter: 2010Q3

REPORT INFORMATION
  Report Type: 
  Country: None (occurrence: None)
  Receive Date: 20100914
  Receipt Date: 20090512
  Transmission Date: 20110219
  Serious: No
  Sender: FDA-Public Use
  Company Number: US-WYE-H08999109

PATIENT
  Sex: Male

DRUGS (1)
  1. TORISEL [Suspect]
     Indication: RENAL CELL CARCINOMA
     Dosage: AT LEAST 25MG WEEKLY
     Route: 042
     Dates: start: 20081101, end: 20090401

REACTIONS (2)
  - DISEASE PROGRESSION [None]
  - TREATMENT FAILURE [None]
